FAERS Safety Report 18504532 (Version 1)
Quarter: 2020Q4

REPORT INFORMATION
  Report Type: Spontaneous
  Country: US (occurrence: US)
  Receive Date: 20201114
  Receipt Date: 20201114
  Transmission Date: 20210114
  Serious: Yes (Hospitalization, Other)
  Sender: FDA-Public Use
  Company Number: US-HIKMA PHARMACEUTICALS USA INC.-US-H14001-20-05057

PATIENT
  Age: 33 Year
  Sex: Female

DRUGS (7)
  1. BLEOMYCIN [Suspect]
     Active Substance: BLEOMYCIN SULFATE
     Indication: HODGKIN^S DISEASE
     Dosage: UNKNOWN
     Route: 065
  2. ARMODAFINIL. [Concomitant]
     Active Substance: ARMODAFINIL
     Indication: HODGKIN^S DISEASE
     Dosage: UNKNOWN
     Route: 065
  3. DACARBAZINE. [Concomitant]
     Active Substance: DACARBAZINE
     Indication: HODGKIN^S DISEASE
     Dosage: UNKNOWN
     Route: 065
  4. ADRIAMYCIN [Concomitant]
     Active Substance: DOXORUBICIN HYDROCHLORIDE
     Indication: HODGKIN^S DISEASE
     Dosage: UNKNOWN
     Route: 065
  5. LURASIDONE [Concomitant]
     Active Substance: LURASIDONE
     Indication: HODGKIN^S DISEASE
     Dosage: UNKNOWN
     Route: 065
  6. VINBLASTINE [Concomitant]
     Active Substance: VINBLASTINE
     Indication: HODGKIN^S DISEASE
     Dosage: UNKNOWN
     Route: 065
  7. NALTREXONE [Concomitant]
     Active Substance: NALTREXONE
     Indication: HODGKIN^S DISEASE
     Dosage: UNKNOWN
     Route: 065

REACTIONS (6)
  - Toxicity to various agents [Recovering/Resolving]
  - Lymphocytosis [Recovering/Resolving]
  - Lung infiltration [Recovering/Resolving]
  - Respiratory failure [Recovering/Resolving]
  - Stevens-Johnson syndrome [Recovering/Resolving]
  - Acute respiratory distress syndrome [Recovering/Resolving]
